FAERS Safety Report 22173916 (Version 1)
Quarter: 2023Q2

REPORT INFORMATION
  Report Type: Spontaneous
  Country: FR (occurrence: FR)
  Receive Date: 20230404
  Receipt Date: 20230404
  Transmission Date: 20230721
  Serious: Yes (Other)
  Sender: FDA-Public Use
  Company Number: FR-EXELIXIS-CABO-23059843

PATIENT
  Age: 59 Year
  Sex: Male

DRUGS (7)
  1. DENOSUMAB [Suspect]
     Active Substance: DENOSUMAB
     Indication: Product used for unknown indication
     Dosage: UNK
     Route: 065
     Dates: start: 2018
  2. CABOZANTINIB [Suspect]
     Active Substance: CABOZANTINIB
     Indication: Thyroid cancer
     Dosage: 20 MILLIGRAM
     Route: 065
     Dates: end: 202010
  3. CABOZANTINIB [Suspect]
     Active Substance: CABOZANTINIB
     Dosage: 40 MG
     Route: 065
  4. CABOZANTINIB [Suspect]
     Active Substance: CABOZANTINIB
     Dosage: 60 MILLIGRAM, QD
     Route: 065
     Dates: start: 202005
  5. PAZOPANIB [Suspect]
     Active Substance: PAZOPANIB
     Indication: Thyroid cancer
     Dosage: 800 MG, BID
     Route: 065
     Dates: start: 201712, end: 201803
  6. LENVATINIB [Suspect]
     Active Substance: LENVATINIB
     Indication: Thyroid cancer
     Dosage: 20 MG
     Route: 065
     Dates: start: 201805
  7. LENVATINIB [Suspect]
     Active Substance: LENVATINIB
     Dosage: 18 MG, QD
     Route: 065
     Dates: end: 201808

REACTIONS (8)
  - Asthenia [Unknown]
  - Osteonecrosis of jaw [Unknown]
  - Mucosal inflammation [Unknown]
  - Malignant neoplasm progression [Unknown]
  - Off label use [Unknown]
  - Weight decreased [Unknown]
  - Diarrhoea [Unknown]
  - Hypothyroidism [Unknown]

NARRATIVE: CASE EVENT DATE: 20200101
